FAERS Safety Report 5340124-8 (Version None)
Quarter: 2007Q2

REPORT INFORMATION
  Report Type: 
  Country: None (occurrence: None)
  Receive Date: 20070525
  Receipt Date: 20070525
  Transmission Date: 20071010
  Serious: Yes (Hospitalization)
  Sender: FDA-Public Use
  Company Number: None

PATIENT
  Age: 66 Year
  Sex: Female
  Weight: 62.1428 kg

DRUGS (8)
  1. ENOXAPARIN SODIUM [Suspect]
     Indication: DEEP VEIN THROMBOSIS
     Dosage: 60 MG Q12H SQ
     Route: 058
     Dates: start: 20061012, end: 20061014
  2. WARFARIN SODIUM [Suspect]
     Indication: DEEP VEIN THROMBOSIS
     Dosage: 5 G NIGHTLY  PO
     Route: 048
     Dates: start: 20061012, end: 20061014
  3. OXAZEPAM [Concomitant]
  4. NORTRIPTYLINE HCL [Concomitant]
  5. TRAZODONE HCL [Concomitant]
  6. DOXYCYCLINE [Concomitant]
  7. OXYGEN [Concomitant]
  8. ALBUTEROL [Concomitant]

REACTIONS (3)
  - BLOOD PRESSURE ORTHOSTATIC ABNORMAL [None]
  - HAEMORRHOIDAL HAEMORRHAGE [None]
  - RECTAL HAEMORRHAGE [None]
